FAERS Safety Report 8913239 (Version 1)
Quarter: 2012Q4

REPORT INFORMATION
  Report Type: 
  Country: BR (occurrence: BR)
  Receive Date: 20121116
  Receipt Date: 20121116
  Transmission Date: 20130627
  Serious: Yes (Hospitalization)
  Sender: FDA-Public Use
  Company Number: BR-ASTRAZENECA-2012SE85466

PATIENT
  Sex: Male

DRUGS (10)
  1. SELOZOK [Suspect]
     Indication: HYPERTENSION
     Route: 048
     Dates: end: 20121020
  2. SELOZOK [Suspect]
     Indication: HYPERTENSION
     Route: 048
  3. CRESTOR [Suspect]
     Indication: BLOOD CHOLESTEROL ABNORMAL
     Route: 048
     Dates: start: 2010, end: 20121020
  4. CRESTOR [Suspect]
     Indication: THROMBOSIS PROPHYLAXIS
     Route: 048
     Dates: start: 2010, end: 20121020
  5. CRESTOR [Suspect]
     Indication: BLOOD CHOLESTEROL ABNORMAL
     Route: 048
  6. CRESTOR [Suspect]
     Indication: THROMBOSIS PROPHYLAXIS
     Route: 048
  7. ASA [Concomitant]
     Indication: ANTIPLATELET THERAPY
     Dosage: DAILY
     Route: 048
  8. CLOPIDOGREL [Concomitant]
     Indication: ANTIPLATELET THERAPY
     Dosage: DAILY
     Route: 048
  9. LOSARTAN [Concomitant]
     Indication: HYPERTENSION
     Route: 048
  10. GLAVUS MET [Concomitant]
     Indication: DIABETES MELLITUS
     Dosage: 50/850MG TWICE A DAY
     Route: 048

REACTIONS (1)
  - Aortic occlusion [Recovered/Resolved]
